FAERS Safety Report 23318880 (Version 1)
Quarter: 2023Q4

REPORT INFORMATION
  Report Type: Spontaneous
  Country: GB (occurrence: GB)
  Receive Date: 20231220
  Receipt Date: 20231220
  Transmission Date: 20240110
  Serious: Yes (Hospitalization, Other)
  Sender: FDA-Public Use
  Company Number: GB-SZ09-PHHO2012GB013211

PATIENT
  Age: 74 Year
  Sex: Female

DRUGS (7)
  1. DOXAZOSIN MESYLATE [Suspect]
     Active Substance: DOXAZOSIN MESYLATE
     Indication: Hypertension
     Dosage: 4 MG,TWO TIMES A DAY,
     Route: 048
     Dates: start: 2009, end: 20120907
  2. BORTEZOMIB [Suspect]
     Active Substance: BORTEZOMIB
     Indication: Plasma cell myeloma
     Dosage: 2.1 MG, ONCE A DAY
     Route: 042
     Dates: start: 20120807, end: 20120904
  3. BORTEZOMIB [Suspect]
     Active Substance: BORTEZOMIB
     Indication: Renal failure
  4. DEXAMETHASONE [Suspect]
     Active Substance: DEXAMETHASONE
     Indication: Plasma cell myeloma
     Dosage: 20 MG,ONCE A DAY,
     Route: 048
     Dates: start: 20120807
  5. DEXAMETHASONE [Suspect]
     Active Substance: DEXAMETHASONE
     Indication: Renal failure
  6. NIFEDIPINE [Suspect]
     Active Substance: NIFEDIPINE
     Indication: Hypertension
     Dosage: 90 MG,ONCE A DAY,
     Route: 048
     Dates: start: 2009, end: 20120907
  7. PROPRANOLOL [Suspect]
     Active Substance: PROPRANOLOL HYDROCHLORIDE
     Indication: Hypertension
     Dosage: 40 MG,TWO TIMES A DAY,
     Route: 048
     Dates: start: 2009, end: 20120907

REACTIONS (14)
  - Acute kidney injury [Recovering/Resolving]
  - Septic shock [Recovering/Resolving]
  - Sepsis [Unknown]
  - Rectal haemorrhage [Unknown]
  - Dehydration [Unknown]
  - Hypotension [Unknown]
  - Dysuria [Unknown]
  - Oedema [Unknown]
  - Anaemia [Unknown]
  - Diarrhoea [Recovered/Resolved]
  - Vomiting [Recovered/Resolved]
  - Cough [Unknown]
  - Headache [Unknown]
  - Malaise [Unknown]

NARRATIVE: CASE EVENT DATE: 20120826
